FAERS Safety Report 6677964-9 (Version None)
Quarter: 2010Q2

REPORT INFORMATION
  Report Type: 
  Country: None (occurrence: None)
  Receive Date: 20100412
  Receipt Date: 20100407
  Transmission Date: 20101027
  Serious: Yes (Hospitalization)
  Sender: FDA-Public Use
  Company Number: US-GILEAD-2010-0028367

PATIENT
  Sex: Female

DRUGS (9)
  1. LETAIRIS [Suspect]
     Indication: PULMONARY ARTERIAL HYPERTENSION
     Route: 048
     Dates: start: 20080522
  2. REVATIO [Concomitant]
  3. COUMADIN [Concomitant]
  4. SPIRONOLACTONE [Concomitant]
  5. LASIX [Concomitant]
  6. DILTIAZEM HCL [Concomitant]
  7. LEVAQUIN [Concomitant]
  8. NEXIUM [Concomitant]
  9. MAGNESIUM OXIDE [Concomitant]

REACTIONS (3)
  - BLOOD POTASSIUM INCREASED [None]
  - DIARRHOEA [None]
  - VOMITING [None]
